FAERS Safety Report 24907725 (Version 5)
Quarter: 2025Q1

REPORT INFORMATION
  Report Type: Spontaneous
  Country: DE (occurrence: DE)
  Receive Date: 20250131
  Receipt Date: 20250306
  Transmission Date: 20250409
  Serious: Yes (Hospitalization, Other)
  Sender: AUROBINDO
  Company Number: DE-002147023-NVSC2025DE004187

PATIENT
  Sex: Female
  Weight: 71 kg

DRUGS (4)
  1. FULVESTRANT [Suspect]
     Active Substance: FULVESTRANT
     Indication: Hormone receptor positive HER2 negative breast cancer
     Route: 058
     Dates: start: 20220916, end: 20221025
  2. LETROZOLE [Suspect]
     Active Substance: LETROZOLE
     Indication: Hormone receptor positive HER2 negative breast cancer
     Dosage: 2.5 MILLIGRAM, ONCE A DAY [2.5 MG(DAILY)]
     Route: 048
     Dates: start: 20190821, end: 20220915
  3. RIBOCICLIB [Suspect]
     Active Substance: RIBOCICLIB
     Indication: Hormone receptor positive HER2 negative breast cancer
     Route: 048
     Dates: start: 20190823, end: 20191127
  4. RIBOCICLIB [Suspect]
     Active Substance: RIBOCICLIB
     Route: 048
     Dates: start: 20191206, end: 20221025

REACTIONS (7)
  - Ocular ischaemic syndrome [Recovering/Resolving]
  - Arteriosclerosis [Recovering/Resolving]
  - Embolism [Recovering/Resolving]
  - Ischaemia [Recovering/Resolving]
  - Transient ischaemic attack [Recovered/Resolved]
  - Metastases to bone marrow [Unknown]
  - Hypertension [Unknown]

NARRATIVE: CASE EVENT DATE: 20250107
